FAERS Safety Report 7526454-X (Version None)
Quarter: 2011Q2

REPORT INFORMATION
  Report Type: 
  Country: None (occurrence: None)
  Receive Date: 20110606
  Receipt Date: 20110530
  Transmission Date: 20111010
  Serious: Yes (Other)
  Sender: FDA-Public Use
  Company Number: CN-ASTRAZENECA-2011SE32846

PATIENT
  Age: 20 Month
  Sex: Male

DRUGS (1)
  1. QUETIAPINE [Suspect]
     Route: 048

REACTIONS (2)
  - ACCIDENTAL DRUG INTAKE BY CHILD [None]
  - EXTRAPYRAMIDAL DISORDER [None]
